FAERS Safety Report 10458024 (Version 3)
Quarter: 2015Q1

REPORT INFORMATION
  Report Type: Spontaneous
  Country: US (occurrence: US)
  Receive Date: 20140916
  Receipt Date: 20150121
  Transmission Date: 20150720
  Serious: Yes (Life-Threatening, Hospitalization, Other)
  Sender: FDA-Public Use
  Company Number: US-ENDO PHARMACEUTICALS INC.-GILD20140018

PATIENT
  Age: 29 Year
  Sex: Female
  Weight: 57.66 kg

DRUGS (2)
  1. GILDESS 1/20 [Suspect]
     Active Substance: ETHINYL ESTRADIOL\NORETHINDRONE ACETATE
     Indication: POLYCYSTIC OVARIES
     Dosage: 1/20
     Route: 048
     Dates: start: 201406, end: 201408
  2. METFORMIN [Concomitant]
     Active Substance: METFORMIN HYDROCHLORIDE
     Indication: POLYCYSTIC OVARIES
     Route: 048

REACTIONS (14)
  - Cardiogenic shock [Recovering/Resolving]
  - Thrombosis in device [None]
  - Ventricular tachycardia [None]
  - Renal failure [Unknown]
  - Cerebrovascular accident [Unknown]
  - Mood altered [Unknown]
  - Fatigue [Unknown]
  - Myocardial infarction [Not Recovered/Not Resolved]
  - Ventricular fibrillation [None]
  - Compartment syndrome [Unknown]
  - Heart transplant [Unknown]
  - Unresponsive to stimuli [Recovered/Resolved]
  - Leg amputation [Recovering/Resolving]
  - Deep vein thrombosis [Recovering/Resolving]

NARRATIVE: CASE EVENT DATE: 2014
